FAERS Safety Report 16005826 (Version 1)
Quarter: 2019Q1

REPORT INFORMATION
  Report Type: Spontaneous
  Country: US (occurrence: US)
  Receive Date: 20190130
  Receipt Date: 20190130
  Transmission Date: 20190418
  Serious: Yes (Other)
  Sender: FDA-Public Use
  Company Number: None

PATIENT
  Age: 88 Year
  Sex: Female
  Weight: 45.36 kg

DRUGS (9)
  1. FLECANIDE ACETATE [Concomitant]
  2. OMEPRAZOLE. [Concomitant]
     Active Substance: OMEPRAZOLE
  3. BIOTIN [Concomitant]
     Active Substance: BIOTIN
  4. FUROSEMIDE. [Concomitant]
     Active Substance: FUROSEMIDE
  5. POTASSIUM [Concomitant]
     Active Substance: POTASSIUM
  6. LISINOPRIL. [Concomitant]
     Active Substance: LISINOPRIL
  7. MUPIROCIN 2% OINTMENT ANTIBIOTIC [Suspect]
     Active Substance: MUPIROCIN
     Indication: EAR INFECTION
     Dosage: ?          QUANTITY:2 % PERCENT;?
     Route: 058
     Dates: start: 20181229, end: 20190104
  8. VIT B-12 [Concomitant]
  9. ACEBUTOLOL [Concomitant]
     Active Substance: ACEBUTOLOL

REACTIONS (1)
  - Heart rate irregular [None]

NARRATIVE: CASE EVENT DATE: 20190104
